FAERS Safety Report 7486242-X (Version None)
Quarter: 2011Q2

REPORT INFORMATION
  Report Type: 
  Country: None (occurrence: None)
  Receive Date: 20110517
  Receipt Date: 20110228
  Transmission Date: 20111010
  Serious: No
  Sender: FDA-Public Use
  Company Number: A0915874A

PATIENT
  Age: 50 Year
  Sex: Female

DRUGS (3)
  1. VOTRIENT [Suspect]
     Dosage: 800MG AT NIGHT
     Route: 048
     Dates: start: 20110120
  2. PERCOCET [Concomitant]
  3. VITAMIN D [Concomitant]

REACTIONS (1)
  - BLOOD PRESSURE INCREASED [None]
